FAERS Safety Report 6229800-2 (Version None)
Quarter: 2009Q2

REPORT INFORMATION
  Report Type: 
  Country: None (occurrence: None)
  Receive Date: 20090615
  Receipt Date: 20090603
  Transmission Date: 20091009
  Serious: Yes (Other)
  Sender: FDA-Public Use
  Company Number: JP-PFIZER INC-2009223226

PATIENT
  Age: 70 Year

DRUGS (2)
  1. XALATAN [Suspect]
     Dosage: 1 GTT, 1X/DAY
     Route: 047
  2. HYALEIN [Suspect]
     Route: 047

REACTIONS (1)
  - MYOSITIS [None]
